FAERS Safety Report 23988574 (Version 1)
Quarter: 2024Q2

REPORT INFORMATION
  Report Type: Spontaneous
  Country: US (occurrence: US)
  Receive Date: 20240619
  Receipt Date: 20240619
  Transmission Date: 20240716
  Serious: Yes (Other)
  Sender: FDA-Public Use
  Company Number: US-ABBVIE-5804565

PATIENT
  Sex: Female

DRUGS (1)
  1. SKYRIZI [Suspect]
     Active Substance: RISANKIZUMAB-RZAA
     Indication: Investigation
     Route: 058

REACTIONS (8)
  - Brain fog [Unknown]
  - Seizure [Unknown]
  - Porphyria [Unknown]
  - Cardiac disorder [Unknown]
  - Liver disorder [Unknown]
  - Gastrointestinal disorder [Unknown]
  - Skin disorder [Recovering/Resolving]
  - Adverse drug reaction [Unknown]
